FAERS Safety Report 11749197 (Version 1)
Quarter: 2015Q4

REPORT INFORMATION
  Report Type: Spontaneous
  Country: US (occurrence: None)
  Receive Date: 20151116
  Receipt Date: 20151116
  Transmission Date: 20160304
  Serious: No
  Sender: FDA-Public Use
  Company Number: None

PATIENT
  Age: 61 Year
  Sex: Female

DRUGS (1)
  1. HARVONI [Suspect]
     Active Substance: LEDIPASVIR\SOFOSBUVIR
     Indication: HEPATITIS C
     Route: 048
     Dates: start: 20150912

REACTIONS (5)
  - Diarrhoea [None]
  - Constipation [None]
  - Eructation [None]
  - Urinary tract infection [None]
  - Abdominal pain [None]

NARRATIVE: CASE EVENT DATE: 20151030
